FAERS Safety Report 20889160 (Version 6)
Quarter: 2023Q1

REPORT INFORMATION
  Report Type: Report from Study
  Country: AR (occurrence: AR)
  Receive Date: 20220530
  Receipt Date: 20230302
  Transmission Date: 20230418
  Serious: Yes (Other)
  Sender: FDA-Public Use
  Company Number: AR-NOVARTISPH-PHHY2018AR005600

PATIENT
  Age: 78 Year
  Sex: Female

DRUGS (4)
  1. COSENTYX [Suspect]
     Active Substance: SECUKINUMAB
     Indication: Psoriasis
     Dosage: 300 MG, QMO
     Route: 058
     Dates: start: 20171204
  2. COSENTYX [Suspect]
     Active Substance: SECUKINUMAB
     Indication: Psoriatic arthropathy
  3. HUMIRA [Concomitant]
     Active Substance: ADALIMUMAB
     Indication: Product used for unknown indication
     Dosage: UNK
     Route: 065
  4. ACETAMINOPHEN [Concomitant]
     Active Substance: ACETAMINOPHEN
     Indication: Product used for unknown indication
     Dosage: UNK (100 UNITS NOT REPORTED)
     Route: 065

REACTIONS (22)
  - Hepatic cirrhosis [Unknown]
  - Condition aggravated [Unknown]
  - Rheumatoid arthritis [Unknown]
  - Pain in extremity [Unknown]
  - Gait disturbance [Unknown]
  - Insomnia [Unknown]
  - Stress [Unknown]
  - Pain [Unknown]
  - Malaise [Unknown]
  - Fall [Unknown]
  - Spinal deformity [Not Recovered/Not Resolved]
  - Lip injury [Unknown]
  - Mouth injury [Unknown]
  - Bone pain [Unknown]
  - Contusion [Unknown]
  - Depressed mood [Unknown]
  - Pruritus [Unknown]
  - Arthralgia [Unknown]
  - Rash [Unknown]
  - Acne [Unknown]
  - Fear [Unknown]
  - Drug ineffective [Unknown]

NARRATIVE: CASE EVENT DATE: 20220101
